FAERS Safety Report 17537041 (Version 1)
Quarter: 2020Q1

REPORT INFORMATION
  Report Type: Spontaneous
  Country: US (occurrence: US)
  Receive Date: 20200305
  Receipt Date: 20200305
  Transmission Date: 20200409
  Serious: No
  Sender: FDA-Public Use
  Company Number: None

PATIENT
  Age: 46 Year
  Sex: Female
  Weight: 80.74 kg

DRUGS (7)
  1. DILANTIN [Suspect]
     Active Substance: PHENYTOIN
  2. LEVETIRACETAM. [Suspect]
     Active Substance: LEVETIRACETAM
  3. TRILEPTAL [Suspect]
     Active Substance: OXCARBAZEPINE
  4. TEGRETOL [Suspect]
     Active Substance: CARBAMAZEPINE
  5. LAMOTRIGINE. [Suspect]
     Active Substance: LAMOTRIGINE
     Dates: end: 20070924
  6. KEPPRA [Concomitant]
     Active Substance: LEVETIRACETAM
  7. LAMICTAL [Concomitant]
     Active Substance: LAMOTRIGINE

REACTIONS (4)
  - Nervous system disorder [None]
  - Status epilepticus [None]
  - Product substitution issue [None]
  - Partial seizures [None]
